FAERS Safety Report 8041727-2 (Version None)
Quarter: 2012Q1

REPORT INFORMATION
  Report Type: 
  Country: None (occurrence: None)
  Receive Date: 20120112
  Receipt Date: 20120104
  Transmission Date: 20120608
  Serious: Yes (Other)
  Sender: FDA-Public Use
  Company Number: US-ASTELLAS-2011US008558

PATIENT
  Sex: Female
  Weight: 74 kg

DRUGS (3)
  1. TACROLIMUS [Suspect]
     Indication: DERMATITIS ATOPIC
     Dosage: WEEKLY
     Route: 061
     Dates: start: 20061210
  2. QUAR HFA [Concomitant]
     Indication: ASTHMA
     Dosage: 40 UG, PRN
     Route: 048
  3. ALBUTEROL [Concomitant]
     Indication: ASTHMA
     Dosage: 90 UG, PRN
     Route: 048
     Dates: start: 20041203

REACTIONS (5)
  - HYPERINSULINAEMIA [None]
  - ABNORMAL WEIGHT GAIN [None]
  - DYSLIPIDAEMIA [None]
  - HYPOTHYROIDISM [None]
  - OBESITY [None]
